FAERS Safety Report 9728906 (Version 1)
Quarter: 2013Q4

REPORT INFORMATION
  Report Type: Report from Study
  Country: JP (occurrence: JP)
  Receive Date: 20131204
  Receipt Date: 20131204
  Transmission Date: 20140711
  Serious: Yes (Other)
  Sender: FDA-Public Use
  Company Number: JP-BAXTER-2013BAX048384

PATIENT
  Sex: Female

DRUGS (9)
  1. ENDOXAN 1G [Suspect]
     Indication: BREAST CANCER
     Route: 042
  2. DEXAMETHASONE [Suspect]
     Indication: EVIDENCE BASED TREATMENT
     Route: 048
  3. FAMOTIDINE [Suspect]
     Indication: EVIDENCE BASED TREATMENT
     Route: 042
  4. GRANISETRON HYDROCHLORIDE [Suspect]
     Indication: EVIDENCE BASED TREATMENT
     Route: 042
  5. CHLORPHENIRAMINE [Suspect]
     Indication: BREAST CANCER
     Route: 042
  6. SALINE [Suspect]
     Indication: BREAST CANCER
     Route: 042
  7. SALINE [Suspect]
     Route: 042
  8. SALINE [Suspect]
     Route: 042
  9. DOCETAXEL [Suspect]
     Indication: BREAST CANCER
     Route: 065

REACTIONS (1)
  - Metastases to bone [Unknown]
